FAERS Safety Report 9867818 (Version 1)
Quarter: 2014Q1

REPORT INFORMATION
  Report Type: Spontaneous
  Country: PL (occurrence: PL)
  Receive Date: 20140204
  Receipt Date: 20140204
  Transmission Date: 20141002
  Serious: Yes (Other)
  Sender: FDA-Public Use
  Company Number: PHHY2014PL009721

PATIENT
  Age: 64 Year
  Sex: Male
  Weight: 96 kg

DRUGS (3)
  1. OXALIPLATIN [Suspect]
     Indication: COLON CANCER
     Dosage: 170 MG, QD
     Route: 042
     Dates: start: 20130821, end: 20131031
  2. LEUCOVORIN CALCIUM [Suspect]
     Indication: COLON CANCER
     Dosage: 2000 MG, QD
     Route: 042
     Dates: start: 20130821, end: 20131031
  3. 5-FLUOROURACIL [Suspect]
     Indication: COLON CANCER
     Dosage: 400 M, QD
     Route: 042
     Dates: start: 20130821, end: 20131031

REACTIONS (1)
  - Neutropenia [Unknown]
